FAERS Safety Report 9482465 (Version 3)
Quarter: 2014Q1

REPORT INFORMATION
  Report Type: Report from Study
  Country: US (occurrence: US)
  Receive Date: 20130828
  Receipt Date: 20140123
  Transmission Date: 20141002
  Serious: Yes (Hospitalization, Other)
  Sender: FDA-Public Use
  Company Number: US-ALEXION PHARMACEUTICALS INC.-A201301912

PATIENT
  Sex: 0

DRUGS (3)
  1. SOLIRIS [Suspect]
     Indication: HAEMOLYTIC URAEMIC SYNDROME
     Dosage: UNK
     Route: 042
  2. SOLIRIS [Suspect]
     Dosage: UNK
     Dates: start: 20130701
  3. ARANESP [Concomitant]
     Indication: PRODUCT USED FOR UNKNOWN INDICATION
     Dosage: UNK
     Route: 065

REACTIONS (9)
  - Transplant [Unknown]
  - Urinary tract infection [Unknown]
  - Hypersomnia [Unknown]
  - Stress [Unknown]
  - Migraine [Unknown]
  - Anxiety [Unknown]
  - Vomiting [Unknown]
  - Pyrexia [Unknown]
  - Inappropriate schedule of drug administration [Unknown]
